FAERS Safety Report 8549512-X (Version None)
Quarter: 2012Q3

REPORT INFORMATION
  Report Type: 
  Country: None (occurrence: None)
  Receive Date: 20120730
  Receipt Date: 20120723
  Transmission Date: 20120928
  Serious: Yes (Other)
  Sender: FDA-Public Use
  Company Number: US-FRI-1000015609

PATIENT
  Age: 60 Year
  Sex: Female
  Weight: 102 kg

DRUGS (2)
  1. THYROID TAB [Suspect]
     Indication: HYPOTHYROIDISM
     Dosage: 240 MG
     Route: 048
     Dates: start: 19880101, end: 20050101
  2. THYROID TAB [Suspect]
     Dosage: 120 MG
     Route: 048
     Dates: start: 20050101

REACTIONS (6)
  - FATIGUE [None]
  - WEIGHT INCREASED [None]
  - WEIGHT DECREASED [None]
  - HOT FLUSH [None]
  - OEDEMA [None]
  - FEELING ABNORMAL [None]
